FAERS Safety Report 8072466-X (Version None)
Quarter: 2012Q1

REPORT INFORMATION
  Report Type: 
  Country: None (occurrence: None)
  Receive Date: 20120126
  Receipt Date: 20120120
  Transmission Date: 20120608
  Serious: Yes (Other)
  Sender: FDA-Public Use
  Company Number: US-PFIZER INC-2012016967

PATIENT
  Sex: Male

DRUGS (1)
  1. REVATIO [Suspect]
     Dosage: UNK

REACTIONS (5)
  - VOMITING [None]
  - DIZZINESS [None]
  - TINNITUS [None]
  - DEAFNESS [None]
  - BALANCE DISORDER [None]
